FAERS Safety Report 6595810-9 (Version None)
Quarter: 2010Q1

REPORT INFORMATION
  Report Type: 
  Country: None (occurrence: None)
  Receive Date: 20100219
  Receipt Date: 20100219
  Transmission Date: 20100710
  Serious: No
  Sender: FDA-Public Use
  Company Number: None

PATIENT
  Age: 57 Year
  Sex: Female
  Weight: 130.1823 kg

DRUGS (5)
  1. METHYLPREDNISOLONE [Suspect]
     Indication: INFLAMMATION
     Dosage: EVERY 5 HRS THURSDAY 1-14-10 BEFORE BKFAST 2TABS 1 AFTER LUNCH/AFTER DINNER 2 BEDTIME THURS FRI SAT
     Dates: start: 20100114
  2. METHYLPREDNISOLONE [Suspect]
     Indication: INFLAMMATION
     Dosage: EVERY 5 HRS THURSDAY 1-14-10 BEFORE BKFAST 2TABS 1 AFTER LUNCH/AFTER DINNER 2 BEDTIME THURS FRI SAT
     Dates: start: 20100115
  3. METHYLPREDNISOLONE [Suspect]
     Indication: INFLAMMATION
     Dosage: EVERY 5 HRS THURSDAY 1-14-10 BEFORE BKFAST 2TABS 1 AFTER LUNCH/AFTER DINNER 2 BEDTIME THURS FRI SAT
     Dates: start: 20100116
  4. METHYLPREDNISOLONE [Suspect]
     Indication: INFLAMMATION
     Dosage: EVERY 5 HRS THURSDAY 1-14-10 BEFORE BKFAST 2TABS 1 AFTER LUNCH/AFTER DINNER 2 BEDTIME THURS FRI SAT
     Dates: start: 20100117
  5. METHYLPREDNISOLONE 4MG TAB [Suspect]
     Dosage: SEE IMAGE

REACTIONS (7)
  - BLINDNESS UNILATERAL [None]
  - GALLBLADDER DISORDER [None]
  - GASTRIC DISORDER [None]
  - LIVER DISORDER [None]
  - RENAL DISORDER [None]
  - SPLEEN DISORDER [None]
  - SWELLING [None]
